FAERS Safety Report 5413074-6 (Version None)
Quarter: 2007Q3

REPORT INFORMATION
  Report Type: 
  Country: None (occurrence: None)
  Receive Date: 20070713
  Receipt Date: 20070403
  Transmission Date: 20080115
  Serious: No
  Sender: FDA-Public Use
  Company Number: 2007SP001204

PATIENT
  Age: 52 Year
  Sex: Female
  Weight: 63.05 kg

DRUGS (3)
  1. LUNESTA [Suspect]
     Indication: INSOMNIA
     Dosage: 3 MG; 1X; ORAL
     Route: 048
     Dates: start: 20070402, end: 20070402
  2. SYNTHROID [Concomitant]
  3. MIRALAX [Concomitant]

REACTIONS (2)
  - DIZZINESS [None]
  - SEDATION [None]
